FAERS Safety Report 10563388 (Version 2)
Quarter: 2014Q4

REPORT INFORMATION
  Report Type: Spontaneous
  Country: US (occurrence: US)
  Receive Date: 20141104
  Receipt Date: 20141117
  Transmission Date: 20150529
  Serious: No
  Sender: FDA-Public Use
  Company Number: US-PFIZER INC-2014302810

PATIENT
  Age: 82 Year
  Sex: Female
  Weight: 62.5 kg

DRUGS (1)
  1. SULFAMETHOXAZOLE/TRIMETHOPRIM [Suspect]
     Active Substance: SULFAMETHOXAZOLE\TRIMETHOPRIM
     Indication: CYSTITIS
     Dosage: SULFAMETHOXAZOLE 800/ TRIMETHOPRIM 160MG, TAKE BY MOUTH TWICE A DAY
     Route: 048
     Dates: start: 20141016, end: 20141025

REACTIONS (3)
  - Drug hypersensitivity [Unknown]
  - Urticaria [Unknown]
  - Pain [Unknown]
